FAERS Safety Report 4472182-7 (Version None)
Quarter: 2004Q4

REPORT INFORMATION
  Report Type: 
  Country: None (occurrence: None)
  Receive Date: 20041008
  Receipt Date: 20040913
  Transmission Date: 20050328
  Serious: No
  Sender: FDA-Public Use
  Company Number: USA040978086

PATIENT
  Age: 11 Year
  Sex: Male

DRUGS (2)
  1. ZYPREXA [Suspect]
     Dosage: 2.5 MG
  2. ZYRTEC [Concomitant]

REACTIONS (1)
  - ACCIDENTAL EXPOSURE [None]
